APPROVED DRUG PRODUCT: CLAFORAN
Active Ingredient: CEFOTAXIME SODIUM
Strength: EQ 10GM BASE/VIAL **Federal Register determination that product was not discontinued or withdrawn for safety or effectiveness reasons**
Dosage Form/Route: INJECTABLE;INJECTION
Application: N050547 | Product #004
Applicant: STERIMAX INC
Approved: Dec 29, 1983 | RLD: Yes | RS: No | Type: DISCN